FAERS Safety Report 20393980 (Version 3)
Quarter: 2022Q3

REPORT INFORMATION
  Report Type: Spontaneous
  Country: IN (occurrence: IN)
  Receive Date: 20220129
  Receipt Date: 20220926
  Transmission Date: 20221027
  Serious: Yes (Other)
  Sender: FDA-Public Use
  Company Number: IN-MLMSERVICE-20220113-3316284-1

PATIENT
  Age: 24 Year
  Sex: Female

DRUGS (4)
  1. PAROXETINE HYDROCHLORIDE [Suspect]
     Active Substance: PAROXETINE HYDROCHLORIDE
     Indication: Generalised anxiety disorder
     Dosage: 12.5 MILLIGRAM, QD (AT NIGHT)
     Route: 065
     Dates: start: 2020, end: 2020
  2. PAROXETINE HYDROCHLORIDE [Suspect]
     Active Substance: PAROXETINE HYDROCHLORIDE
     Dosage: 25 MILLIGRAM, QD (AT NIGHT)
     Route: 065
     Dates: start: 2020, end: 2020
  3. PAROXETINE HYDROCHLORIDE [Suspect]
     Active Substance: PAROXETINE HYDROCHLORIDE
     Dosage: 12.5 MILLIGRAM, QD (LOWERED)
     Route: 065
     Dates: start: 2020, end: 2020
  4. CLONAZEPAM [Concomitant]
     Active Substance: CLONAZEPAM
     Indication: Sleep disorder
     Dosage: 0.5 MILLIGRAM, QD (AT NIGHT)
     Route: 065
     Dates: start: 2020

REACTIONS (2)
  - Hyperprolactinaemia [Recovered/Resolved]
  - Galactorrhoea [Recovered/Resolved]

NARRATIVE: CASE EVENT DATE: 20200101
